FAERS Safety Report 12708951 (Version 1)
Quarter: 2016Q3

REPORT INFORMATION
  Report Type: Spontaneous
  Country: US (occurrence: US)
  Receive Date: 20160901
  Receipt Date: 20160901
  Transmission Date: 20161109
  Serious: No
  Sender: FDA-Public Use
  Company Number: US-JAZZ-2016-US-008462

PATIENT
  Sex: Female

DRUGS (25)
  1. LEVOFLOXACIN. [Concomitant]
     Active Substance: LEVOFLOXACIN
  2. NUVIGIL [Concomitant]
     Active Substance: ARMODAFINIL
  3. DEXTROAMPHETAMINE. [Concomitant]
     Active Substance: DEXTROAMPHETAMINE
  4. PANTOPRAZOLE SODIUM. [Concomitant]
     Active Substance: PANTOPRAZOLE SODIUM
  5. PROAIR HFA [Concomitant]
     Active Substance: ALBUTEROL SULFATE
  6. SLOW-MAG [Concomitant]
     Active Substance: MAGNESIUM CHLORIDE
  7. XYREM [Suspect]
     Active Substance: SODIUM OXYBATE
     Indication: NARCOLEPSY
     Dosage: 2.25 G, BID
     Route: 048
     Dates: start: 201308, end: 201310
  8. XYREM [Suspect]
     Active Substance: SODIUM OXYBATE
     Dosage: 3 G, BID
     Route: 048
     Dates: start: 201310
  9. XIFAXAN [Concomitant]
     Active Substance: RIFAXIMIN
  10. DEXILANT [Concomitant]
     Active Substance: DEXLANSOPRAZOLE
  11. TRIPLE FLEX [Concomitant]
  12. OXYCODONE HYDROCHLORIDE. [Concomitant]
     Active Substance: OXYCODONE HYDROCHLORIDE
  13. VITAMIN B12 [Concomitant]
     Active Substance: CYANOCOBALAMIN
  14. RABEPRAZOLE SODIUM. [Concomitant]
     Active Substance: RABEPRAZOLE SODIUM
  15. LEVAQUIN [Concomitant]
     Active Substance: LEVOFLOXACIN
  16. LIDODERM [Concomitant]
     Active Substance: LIDOCAINE
  17. BETHANECHOL [Concomitant]
     Active Substance: BETHANECHOL
  18. ALVESCO [Concomitant]
     Active Substance: CICLESONIDE
  19. VITAMIN D [Concomitant]
     Active Substance: CHOLECALCIFEROL
  20. RANITIDINE. [Concomitant]
     Active Substance: RANITIDINE
  21. SALONPAS PAIN RELIEF [Concomitant]
     Active Substance: MENTHOL\METHYL SALICYLATE
  22. CLARINEX [Concomitant]
     Active Substance: DESLORATADINE
  23. FLEXERIL [Concomitant]
     Active Substance: CYCLOBENZAPRINE HYDROCHLORIDE
  24. PROZAC [Concomitant]
     Active Substance: FLUOXETINE HYDROCHLORIDE
  25. ASPIRIN. [Concomitant]
     Active Substance: ASPIRIN

REACTIONS (3)
  - Poor quality sleep [Not Recovered/Not Resolved]
  - Wrong technique in product usage process [Unknown]
  - Hunger [Not Recovered/Not Resolved]
